FAERS Safety Report 7998526-7 (Version None)
Quarter: 2011Q4

REPORT INFORMATION
  Report Type: 
  Country: None (occurrence: None)
  Receive Date: 20111221
  Receipt Date: 20111212
  Transmission Date: 20120403
  Serious: Yes (Death, Life-Threatening, Hospitalization, Other)
  Sender: FDA-Public Use
  Company Number: ES-CELGENEUS-144-50794-11121358

PATIENT
  Sex: Male
  Weight: 90 kg

DRUGS (7)
  1. FIBER [Concomitant]
     Indication: CONSTIPATION
     Route: 065
  2. ALLOPURINOL [Concomitant]
     Route: 065
     Dates: start: 20090901
  3. VARIOUS [Concomitant]
     Route: 065
  4. BOTOX [Concomitant]
     Indication: ANAL FISTULA
     Route: 065
     Dates: start: 20080701
  5. DILTIAZEM HCL [Concomitant]
     Indication: ANAL FISTULA
     Route: 065
     Dates: start: 20080701
  6. MOMETASONE FUROATE [Concomitant]
     Indication: INFECTION
     Route: 065
  7. VIDAZA [Suspect]
     Dosage: 75 MILLIGRAM/SQ. METER
     Route: 050
     Dates: start: 20081027, end: 20081104

REACTIONS (1)
  - ANORECTAL CELLULITIS [None]
